FAERS Safety Report 4586561-0 (Version None)
Quarter: 2005Q1

REPORT INFORMATION
  Report Type: 
  Country: None (occurrence: None)
  Receive Date: 20050218
  Receipt Date: 20040325
  Transmission Date: 20050727
  Serious: Yes (Hospitalization)
  Sender: FDA-Public Use
  Company Number: US-BRISTOL-MYERS SQUIBB COMPANY-12542593

PATIENT
  Age: 76 Year
  Sex: Female
  Weight: 57 kg

DRUGS (18)
  1. TAXOL [Suspect]
     Indication: OVARIAN CANCER
     Route: 042
     Dates: start: 20040126, end: 20040126
  2. DEXAMETHASONE [Concomitant]
     Indication: PREMEDICATION
     Dosage: 12 HOURS PRIOR TO INFUSION (PREMEDICATION) 6 HOURS POST INFUSION
     Route: 048
  3. CATAPRES [Concomitant]
     Dosage: AS NEEDED
  4. MARINOL [Concomitant]
  5. THYROID TAB [Concomitant]
     Indication: HYPOTHYROIDISM
     Route: 048
  6. PROCRIT [Concomitant]
  7. KENALOG [Concomitant]
  8. NIFEDIPINE [Concomitant]
     Indication: HYPERTENSION
     Route: 048
  9. GEMFIBROZIL [Concomitant]
     Indication: HYPERLIPIDAEMIA
     Route: 048
  10. CENTRUM [Concomitant]
     Route: 048
  11. VITAMIN E [Concomitant]
     Route: 048
  12. COUMADIN [Concomitant]
     Indication: THROMBOSIS
     Route: 048
  13. NEOMYCIN [Concomitant]
     Route: 048
  14. MAXZIDE [Concomitant]
     Dosage: 75/50
     Route: 048
  15. MAGNESIUM [Concomitant]
     Indication: BLOOD MAGNESIUM DECREASED
     Route: 048
  16. FOLTX [Concomitant]
     Route: 048
  17. CALTRATE [Concomitant]
     Indication: OSTEOPOROSIS
     Route: 048
  18. CARBOPLATIN [Concomitant]
     Indication: OVARIAN CANCER
     Route: 042

REACTIONS (1)
  - STEVENS-JOHNSON SYNDROME [None]
